FAERS Safety Report 16233235 (Version 3)
Quarter: 2019Q2

REPORT INFORMATION
  Report Type: Spontaneous
  Country: US (occurrence: US)
  Receive Date: 20190424
  Receipt Date: 20190625
  Transmission Date: 20190711
  Serious: No
  Sender: FDA-Public Use
  Company Number: US-PFIZER INC-2019170289

PATIENT
  Age: 50 Year
  Sex: Female
  Weight: 71 kg

DRUGS (2)
  1. LYRICA [Suspect]
     Active Substance: PREGABALIN
     Indication: FIBROMYALGIA
  2. LYRICA [Suspect]
     Active Substance: PREGABALIN
     Indication: ARTHRITIS
     Dosage: 150 MG, 3X/DAY
     Route: 048
     Dates: end: 201902

REACTIONS (5)
  - Product use issue [Unknown]
  - Swelling [Not Recovered/Not Resolved]
  - Off label use [Unknown]
  - Withdrawal syndrome [Unknown]
  - Headache [Not Recovered/Not Resolved]
